FAERS Safety Report 7987947-4 (Version None)
Quarter: 2011Q4

REPORT INFORMATION
  Report Type: 
  Country: None (occurrence: None)
  Receive Date: 20111216
  Receipt Date: 20110512
  Transmission Date: 20120403
  Serious: No
  Sender: FDA-Public Use
  Company Number: US-BRISTOL-MYERS SQUIBB COMPANY-15741366

PATIENT
  Age: 16 Year
  Sex: Female

DRUGS (3)
  1. LORAZEPAM [Concomitant]
  2. LAMICTAL [Concomitant]
     Dosage: TITRATED
  3. ABILIFY [Suspect]
     Indication: DEPRESSION
     Dosage: INITIAL DOSE 5MG REDUCED TO 2.5MG.

REACTIONS (3)
  - HYPERHIDROSIS [None]
  - ANXIETY [None]
  - HOT FLUSH [None]
